FAERS Safety Report 5783609-2 (Version None)
Quarter: 2008Q2

REPORT INFORMATION
  Report Type: 
  Country: None (occurrence: None)
  Receive Date: 20080605
  Receipt Date: 20080325
  Transmission Date: 20081010
  Serious: No
  Sender: FDA-Public Use
  Company Number: A0716586A

PATIENT

DRUGS (2)
  1. ALLI [Suspect]
  2. VITAMINS [Concomitant]

REACTIONS (9)
  - BILE OUTPUT INCREASED [None]
  - BLOOD CHOLESTEROL INCREASED [None]
  - BLOOD GLUCOSE FLUCTUATION [None]
  - BLOOD PRESSURE INCREASED [None]
  - BLOOD TRIGLYCERIDES INCREASED [None]
  - CONDITION AGGRAVATED [None]
  - DIARRHOEA [None]
  - INCREASED APPETITE [None]
  - NAUSEA [None]
